FAERS Safety Report 6331637-0 (Version None)
Quarter: 2009Q3

REPORT INFORMATION
  Report Type: 
  Country: None (occurrence: None)
  Receive Date: 20090827
  Receipt Date: 20090821
  Transmission Date: 20100115
  Serious: Yes (Hospitalization, Other)
  Sender: FDA-Public Use
  Company Number: PHHY2009CA35600

PATIENT
  Sex: Female

DRUGS (5)
  1. DIOVAN [Suspect]
     Dosage: 80 MG, UNK
  2. DIOVAN [Suspect]
     Dosage: 1 DF (160 MG) PER DAY
     Route: 048
     Dates: start: 20090812
  3. SOTALOL HYDROCHLORIDE [Concomitant]
     Indication: ATRIAL FIBRILLATION
  4. FLECAINIDE ACETATE [Concomitant]
     Indication: ATRIAL FIBRILLATION
     Dosage: 100 MG, BID
  5. METFORMIN HCL [Concomitant]
     Indication: DIABETES MELLITUS
     Dosage: 500 MG, BID
     Dates: start: 20050101

REACTIONS (9)
  - CHEST DISCOMFORT [None]
  - CHEST PAIN [None]
  - DIARRHOEA [None]
  - DIZZINESS [None]
  - ERUCTATION [None]
  - FATIGUE [None]
  - FLATULENCE [None]
  - HEART RATE INCREASED [None]
  - NAUSEA [None]
